FAERS Safety Report 22137997 (Version 1)
Quarter: 2023Q1

REPORT INFORMATION
  Report Type: Spontaneous
  Country: US (occurrence: US)
  Receive Date: 20230325
  Receipt Date: 20230325
  Transmission Date: 20230418
  Serious: No
  Sender: FDA-Public Use
  Company Number: US-drreddys-SPO/USA/23/0161291

PATIENT
  Age: 26 Year

DRUGS (1)
  1. ZENATANE [Suspect]
     Active Substance: ISOTRETINOIN
     Indication: Acne
     Dosage: RMA ISSUE DATE:  30 NOVEMBER 2022 06:03:21 PM AND 09 JANUARY 2023 10:14:08 AM

REACTIONS (1)
  - Laboratory test abnormal [Unknown]
